FAERS Safety Report 7299837-3 (Version None)
Quarter: 2011Q1

REPORT INFORMATION
  Report Type: 
  Country: None (occurrence: None)
  Receive Date: 20110208
  Receipt Date: 20110126
  Transmission Date: 20110831
  Serious: Yes (Death, Life-Threatening, Hospitalization, Other)
  Sender: FDA-Public Use
  Company Number: 2007-03402

PATIENT
  Age: 62 Year
  Sex: Male
  Weight: 65 kg

DRUGS (7)
  1. ALKERAN [Concomitant]
  2. LASIX [Concomitant]
  3. DEPAKENE [Concomitant]
  4. DI-ANTALVIC (DEXTROPROPOXYPHENE, PARACETAMOL) [Concomitant]
  5. VELCADE [Suspect]
     Indication: MULTIPLE MYELOMA
     Dosage: 0.70 MG/M2, INTRAVENOUS
     Route: 042
     Dates: start: 20070521, end: 20070917
  6. VALIUM [Concomitant]
  7. RED BLOOD CELLS [Concomitant]

REACTIONS (16)
  - NERVOUS SYSTEM DISORDER [None]
  - PROSTATITIS [None]
  - MENTAL DISORDER [None]
  - HUMERUS FRACTURE [None]
  - BONE PAIN [None]
  - EPISTAXIS [None]
  - BRONCHITIS [None]
  - THROMBOCYTOPENIA [None]
  - ANAEMIA [None]
  - DISORIENTATION [None]
  - DISEASE PROGRESSION [None]
  - NEUROPATHY PERIPHERAL [None]
  - NEUTROPENIA [None]
  - COUGH [None]
  - FALL [None]
  - MUSCULOSKELETAL PAIN [None]
